FAERS Safety Report 7867004-8 (Version None)
Quarter: 2011Q4

REPORT INFORMATION
  Report Type: 
  Country: None (occurrence: None)
  Receive Date: 20111028
  Receipt Date: 20111019
  Transmission Date: 20120403
  Serious: Yes (Death, Hospitalization)
  Sender: FDA-Public Use
  Company Number: US-JNJFOC-20110809142

PATIENT
  Sex: Female

DRUGS (4)
  1. NUCYNTA [Suspect]
     Indication: TRIGEMINAL NEURALGIA
     Dosage: 100 MG TWICE DAILY AS NECESSARY
     Route: 048
     Dates: start: 20110202
  2. GABAPENTIN [Concomitant]
     Indication: TRIGEMINAL NEURALGIA
     Dosage: THRICE A DAY
     Route: 065
     Dates: start: 20070718
  3. ACYCLOVIR [Concomitant]
     Dosage: ONCE A DAY
     Route: 065
  4. SYNTHROID [Concomitant]
     Dosage: ONCE A DAY
     Route: 065

REACTIONS (3)
  - DYSPNOEA [None]
  - OVERDOSE [None]
  - UNRESPONSIVE TO STIMULI [None]
